FAERS Safety Report 9054053 (Version 1)
Quarter: 2013Q1

REPORT INFORMATION
  Report Type: Spontaneous
  Country: TR (occurrence: TR)
  Receive Date: 20130208
  Receipt Date: 20130208
  Transmission Date: 20140127
  Serious: Yes (Hospitalization)
  Sender: FDA-Public Use
  Company Number: TR-ASTELLAS-2013EU001108

PATIENT
  Age: 84 Year
  Sex: Male

DRUGS (2)
  1. SOLIFENACIN [Suspect]
     Indication: URINARY INCONTINENCE
     Dosage: 5 MG, UNKNOWN/D
     Route: 065
  2. DONEPEZIL [Concomitant]
     Dosage: 10 MG, UNKNOWN/D
     Route: 065

REACTIONS (1)
  - Dyskinesia [Recovered/Resolved]
